FAERS Safety Report 12845148 (Version 1)
Quarter: 2016Q4

REPORT INFORMATION
  Report Type: Spontaneous
  Country: BE (occurrence: BE)
  Receive Date: 20161013
  Receipt Date: 20161013
  Transmission Date: 20170207
  Serious: No
  Sender: FDA-Public Use
  Company Number: BE-TOLMAR, INC.-2015BE010597

PATIENT
  Sex: Male

DRUGS (2)
  1. LUCRIN [Concomitant]
     Active Substance: LEUPROLIDE ACETATE
     Route: 065
  2. ELIGARD [Suspect]
     Active Substance: LEUPROLIDE ACETATE
     Indication: TRANSGENDER OPERATION
     Dosage: 7.5 MG, UNK
     Route: 065

REACTIONS (1)
  - Off label use [Unknown]
